FAERS Safety Report 23978002 (Version 1)
Quarter: 2024Q2

REPORT INFORMATION
  Report Type: Report from Study
  Country: US (occurrence: None)
  Receive Date: 20240614
  Receipt Date: 20240614
  Transmission Date: 20240716
  Serious: Yes (Other)
  Sender: FDA-Public Use
  Company Number: 2024A133846

PATIENT
  Age: 368 Month
  Sex: Male
  Weight: 68 kg

DRUGS (10)
  1. FASENRA [Suspect]
     Active Substance: BENRALIZUMAB
     Indication: Asthma
     Route: 058
     Dates: start: 2020
  2. FASENRA [Suspect]
     Active Substance: BENRALIZUMAB
     Indication: Asthma
     Route: 058
     Dates: start: 20211119, end: 202304
  3. SYNTHROID [Concomitant]
     Active Substance: LEVOTHYROXINE SODIUM
  4. SYMBICORT [Concomitant]
     Active Substance: BUDESONIDE\FORMOTEROL FUMARATE DIHYDRATE
  5. MODAFINIL [Concomitant]
     Active Substance: MODAFINIL
  6. SPIRIVA RESPIMAT [Concomitant]
     Active Substance: TIOTROPIUM BROMIDE
  7. ONDANSETRON HYDROCHLORIDE [Concomitant]
     Active Substance: ONDANSETRON HYDROCHLORIDE
  8. ALBUTEROL SULFATE [Concomitant]
     Active Substance: ALBUTEROL SULFATE
  9. DUPIXENT [Concomitant]
     Active Substance: DUPILUMAB
     Dates: start: 20200930, end: 202111
  10. DUPIXENT [Concomitant]
     Active Substance: DUPILUMAB
     Dates: start: 20230428, end: 20240113

REACTIONS (8)
  - Gallbladder disorder [Unknown]
  - Hepatic steatosis [Unknown]
  - Weight increased [Unknown]
  - White blood cell count increased [Unknown]
  - Dyspepsia [Unknown]
  - Eosinophilic gastritis [Unknown]
  - Eczema [Unknown]
  - Laboratory test abnormal [Unknown]

NARRATIVE: CASE EVENT DATE: 20230101
